FAERS Safety Report 23456907 (Version 3)
Quarter: 2024Q1

REPORT INFORMATION
  Report Type: Spontaneous
  Country: US (occurrence: US)
  Receive Date: 20240130
  Receipt Date: 20240315
  Transmission Date: 20240410
  Serious: No
  Sender: FDA-Public Use
  Company Number: US-BIOVITRUM-2024-US-001309

PATIENT
  Age: 0 Year
  Sex: Male

DRUGS (1)
  1. SYNAGIS [Suspect]
     Active Substance: PALIVIZUMAB
     Indication: Choanal atresia
     Dosage: EVERY 28DAYS -30DAYS
     Route: 030
     Dates: start: 20230714, end: 20240122

REACTIONS (5)
  - Nasal congestion [Unknown]
  - Umbilical hernia [Recovering/Resolving]
  - Pyrexia [Recovering/Resolving]
  - Off label use [Recovered/Resolved]
  - Nasopharyngitis [Unknown]

NARRATIVE: CASE EVENT DATE: 20240121
